FAERS Safety Report 6518849-8 (Version None)
Quarter: 2009Q4

REPORT INFORMATION
  Report Type: 
  Country: None (occurrence: None)
  Receive Date: 20091228
  Receipt Date: 20091201
  Transmission Date: 20100525
  Serious: No
  Sender: FDA-Public Use
  Company Number: US-BAYER-200942222NA

PATIENT
  Age: 51 Year
  Sex: Female
  Weight: 57 kg

DRUGS (1)
  1. MAGNEVIST [Suspect]
     Indication: NUCLEAR MAGNETIC RESONANCE IMAGING BRAIN
     Dosage: ADMINISTERED MANUALLY VIA THE RIGHT ANTECUBITAL
     Route: 042
     Dates: start: 20091201, end: 20091201

REACTIONS (2)
  - NAUSEA [None]
  - VOMITING [None]
